FAERS Safety Report 10012281 (Version 1)
Quarter: 2014Q1

REPORT INFORMATION
  Report Type: Spontaneous
  Country: IE (occurrence: IT)
  Receive Date: 20140314
  Receipt Date: 20140314
  Transmission Date: 20141002
  Serious: Yes (Life-Threatening)
  Sender: FDA-Public Use
  Company Number: 2014SP001396

PATIENT
  Age: 54 Year
  Sex: Male

DRUGS (5)
  1. VANCOMYCIN [Suspect]
     Indication: INFECTION
     Route: 042
     Dates: start: 20111219, end: 20120106
  2. CEFTAZIDIME [Suspect]
     Indication: INFECTION
     Route: 065
     Dates: start: 20111219, end: 20120106
  3. KETOROLAC TROMETHAMINE [Suspect]
     Indication: PAIN
     Route: 048
     Dates: start: 20111219, end: 20120115
  4. ACETAZOLAMIDE [Suspect]
     Indication: CARDIAC FAILURE
     Route: 048
     Dates: start: 20111218, end: 20120112
  5. PARACETAMOL [Suspect]
     Indication: PYREXIA
     Route: 042
     Dates: start: 20110219, end: 20120115

REACTIONS (7)
  - Stevens-Johnson syndrome [Unknown]
  - Dermatitis exfoliative [Unknown]
  - Stomatitis [Unknown]
  - Eosinophilia [Unknown]
  - Blood creatinine increased [Unknown]
  - Pyrexia [Unknown]
  - Transaminases increased [Unknown]
